FAERS Safety Report 5560044-3 (Version None)
Quarter: 2007Q4

REPORT INFORMATION
  Report Type: 
  Country: None (occurrence: None)
  Receive Date: 20071214
  Receipt Date: 20071022
  Transmission Date: 20080405
  Serious: No
  Sender: FDA-Public Use
  Company Number: US-ABBOTT-07P-163-0421987-00

PATIENT
  Sex: Female
  Weight: 109.1 kg

DRUGS (14)
  1. HUMIRA [Suspect]
     Indication: RHEUMATOID ARTHRITIS
     Route: 058
     Dates: start: 20060501, end: 20060601
  2. HUMIRA [Suspect]
     Route: 058
     Dates: start: 20060601
  3. PREGABALIN [Concomitant]
     Indication: PAIN
     Route: 048
  4. PREGABALIN [Concomitant]
     Indication: FIBROMYALGIA
  5. LEVOTHYROXINE SODIUM [Concomitant]
     Indication: THYROID DISORDER
     Route: 048
  6. THYROID TAB [Concomitant]
     Indication: THYROID DISORDER
     Route: 048
  7. INSULIN GLARGINE [Concomitant]
     Indication: DIABETES MELLITUS
     Route: 058
  8. DULOXETINE HYDROCHLORIDE [Concomitant]
     Indication: DEPRESSION
     Route: 048
  9. CARISOPRODOL [Concomitant]
     Indication: MYALGIA
     Route: 048
  10. DIAZEPAM [Concomitant]
     Indication: ANXIETY
     Route: 048
  11. ALPRAZOLAM [Concomitant]
     Indication: ANXIETY
     Route: 048
  12. ACETYLSALICYLIC ACID SRT [Concomitant]
     Indication: ANTICOAGULANT THERAPY
     Route: 048
  13. HYDROCODONE BITARTRATE [Concomitant]
     Indication: PAIN
     Route: 048
  14. FOLIC ACID [Concomitant]
     Indication: HAEMATURIA
     Route: 048

REACTIONS (5)
  - ARTHRALGIA [None]
  - DRUG INEFFECTIVE [None]
  - FALL [None]
  - MENISCUS LESION [None]
  - SWELLING [None]
